FAERS Safety Report 19086592 (Version 1)
Quarter: 2021Q2

REPORT INFORMATION
  Report Type: Spontaneous
  Country: JP (occurrence: JP)
  Receive Date: 20210402
  Receipt Date: 20210402
  Transmission Date: 20210717
  Serious: Yes (Other)
  Sender: FDA-Public Use
  Company Number: JP-BAYER-2021-107606

PATIENT

DRUGS (1)
  1. STIVARGA [Suspect]
     Active Substance: REGORAFENIB
     Dosage: DOSE REDUCED PRESCRIPTION
     Dates: start: 20200915

REACTIONS (2)
  - Visual impairment [Not Recovered/Not Resolved]
  - Cataract [None]

NARRATIVE: CASE EVENT DATE: 20210215
